FAERS Safety Report 4610530-5 (Version None)
Quarter: 2005Q2

REPORT INFORMATION
  Report Type: 
  Country: None (occurrence: None)
  Receive Date: 20050301
  Receipt Date: 20041129
  Transmission Date: 20051028
  Serious: No
  Sender: FDA-Public Use
  Company Number: WAES 0411USA04184

PATIENT
  Age: 49 Year
  Sex: Male
  Weight: 69.8539 kg

DRUGS (1)
  1. ZETIA [Suspect]
     Indication: HYPERCHOLESTEROLAEMIA
     Dosage: 10 MG/DAILY/PO
     Route: 048
     Dates: end: 20040101

REACTIONS (5)
  - DYSPNOEA [None]
  - HYPOAESTHESIA [None]
  - MYOPATHY [None]
  - PAIN IN EXTREMITY [None]
  - PERIPHERAL COLDNESS [None]
